FAERS Safety Report 5931435-3 (Version None)
Quarter: 2008Q4

REPORT INFORMATION
  Report Type: 
  Country: None (occurrence: None)
  Receive Date: 20081024
  Receipt Date: 20081024
  Transmission Date: 20090506
  Serious: No
  Sender: FDA-Public Use
  Company Number: None

PATIENT
  Age: 49 Year
  Sex: Female

DRUGS (1)
  1. SULFADIAZINE [Suspect]
     Dosage: 1000 MG EVERY 6 HOURS PO
     Route: 048
     Dates: start: 20080723, end: 20080729

REACTIONS (5)
  - CRYSTAL URINE PRESENT [None]
  - HAEMOLYTIC ANAEMIA [None]
  - NEPHROPATHY [None]
  - RENAL INJURY [None]
  - TOXOPLASMOSIS [None]
